FAERS Safety Report 13736089 (Version 1)
Quarter: 2017Q3

REPORT INFORMATION
  Report Type: Spontaneous
  Country: US (occurrence: US)
  Receive Date: 20170707
  Receipt Date: 20170707
  Transmission Date: 20171127
  Serious: No
  Sender: FDA-Public Use
  Company Number: None

PATIENT
  Age: 47 Year
  Sex: Female

DRUGS (1)
  1. AMPYRA [Suspect]
     Active Substance: DALFAMPRIDINE
     Indication: MULTIPLE SCLEROSIS
     Route: 048
     Dates: start: 20170611

REACTIONS (8)
  - Feeling hot [None]
  - Urinary tract infection [None]
  - Dysuria [None]
  - Blood iron decreased [None]
  - Laboratory test abnormal [None]
  - Blood 1,25-dihydroxycholecalciferol decreased [None]
  - Serum ferritin decreased [None]
  - Hyperhidrosis [None]

NARRATIVE: CASE EVENT DATE: 20170616
